FAERS Safety Report 8328917-6 (Version None)
Quarter: 2012Q2

REPORT INFORMATION
  Report Type: 
  Country: None (occurrence: None)
  Receive Date: 20120502
  Receipt Date: 20101006
  Transmission Date: 20120825
  Serious: No
  Sender: FDA-Public Use
  Company Number: US-TEVA-2010005092

PATIENT
  Sex: Male
  Weight: 74.002 kg

DRUGS (1)
  1. NUVIGIL [Suspect]
     Indication: SOMNOLENCE
     Dosage: 250 MILLIGRAM;
     Route: 048
     Dates: start: 20100920, end: 20100921

REACTIONS (3)
  - RASH [None]
  - ERYTHEMA [None]
  - URTICARIA [None]
